FAERS Safety Report 5785946-4 (Version None)
Quarter: 2008Q2

REPORT INFORMATION
  Report Type: 
  Country: None (occurrence: None)
  Receive Date: 20080619
  Receipt Date: 20080611
  Transmission Date: 20081010
  Serious: Yes (Other)
  Sender: FDA-Public Use
  Company Number: 2008SP010650

PATIENT
  Age: 45 Year
  Sex: Male

DRUGS (2)
  1. PEGETRON (PEGINTERFERON ALFA-2B W/RIBAVIRIN)(PEGYLATED INTERFERON ALFA [Suspect]
     Indication: HEPATITIS C
     Dosage: SC; 1000 MG; QD; PO
     Route: 048
     Dates: start: 20080409
  2. PEGETRON (PEGINTERFERON ALFA-2B W/RIBAVIRIN)(PEGYLATED INTERFERON ALFA [Suspect]
     Indication: HEPATITIS C
     Dosage: SC; 1000 MG; QD; PO
     Route: 048
     Dates: start: 20080409

REACTIONS (3)
  - CONVULSION [None]
  - HYPOGLYCAEMIA [None]
  - REFUSAL OF TREATMENT BY PATIENT [None]
